FAERS Safety Report 7119852-X (Version None)
Quarter: 2010Q4

REPORT INFORMATION
  Report Type: 
  Country: None (occurrence: None)
  Receive Date: 20101123
  Receipt Date: 20100910
  Transmission Date: 20110411
  Serious: No
  Sender: FDA-Public Use
  Company Number: US-BRISTOL-MYERS SQUIBB COMPANY-15280894

PATIENT
  Age: 42 Year
  Sex: Female
  Weight: 105 kg

DRUGS (15)
  1. ONGLYZA [Suspect]
     Dates: start: 20100101
  2. GABAPENTIN [Concomitant]
  3. ACTOS [Concomitant]
  4. METFORMIN HCL [Concomitant]
  5. LAMICTAL [Concomitant]
  6. NORVASC [Concomitant]
  7. CLARITIN [Concomitant]
  8. ASPIRIN [Concomitant]
  9. IBUPROFEN [Concomitant]
  10. KLONOPIN [Concomitant]
  11. LOPRESSOR [Concomitant]
  12. ALBUTEROL [Concomitant]
  13. LEXAPRO [Concomitant]
  14. CHERATUSSIN AC [Concomitant]
  15. MIRAPEX [Concomitant]

REACTIONS (1)
  - BRONCHITIS [None]
